FAERS Safety Report 13255731 (Version 1)
Quarter: 2017Q1

REPORT INFORMATION
  Report Type: Spontaneous
  Country: US (occurrence: US)
  Receive Date: 20170221
  Receipt Date: 20170221
  Transmission Date: 20170428
  Serious: Yes (Life-Threatening, Other)
  Sender: FDA-Public Use
  Company Number: US-ELI_LILLY_AND_COMPANY-US201702007325

PATIENT
  Age: 33 Year
  Sex: Male

DRUGS (2)
  1. HUMALOG [Suspect]
     Active Substance: INSULIN LISPRO
     Indication: DIABETES MELLITUS
     Dosage: 10 U, TID
     Route: 065
     Dates: start: 1999
  2. LANTUS [Concomitant]
     Active Substance: INSULIN GLARGINE
     Indication: PRODUCT USED FOR UNKNOWN INDICATION

REACTIONS (6)
  - Retinal detachment [Unknown]
  - Blindness [Unknown]
  - Blood pressure increased [Unknown]
  - Cardiac arrest [Unknown]
  - Migraine [Recovering/Resolving]
  - Intraocular pressure test abnormal [Unknown]

NARRATIVE: CASE EVENT DATE: 201507
